FAERS Safety Report 15043518 (Version 3)
Quarter: 2018Q3

REPORT INFORMATION
  Report Type: Spontaneous
  Country: US (occurrence: US)
  Receive Date: 20180621
  Receipt Date: 20180903
  Transmission Date: 20181010
  Serious: No
  Sender: FDA-Public Use
  Company Number: US-SA-2018SA163630

PATIENT
  Age: 61 Year
  Sex: Male

DRUGS (2)
  1. FLOMAX RELIEF [Concomitant]
     Active Substance: TAMSULOSIN HYDROCHLORIDE
  2. DUPIXENT [Suspect]
     Active Substance: DUPILUMAB
     Dosage: 300 MG, QOW
     Route: 058
     Dates: start: 20180202

REACTIONS (9)
  - Condition aggravated [Recovered/Resolved]
  - Skin exfoliation [Recovered/Resolved]
  - Rash [Unknown]
  - Micturition disorder [Recovering/Resolving]
  - Lower limb fracture [Unknown]
  - Visual impairment [Recovering/Resolving]
  - Upper limb fracture [Unknown]
  - Skin disorder [Unknown]
  - Pruritus [Unknown]

NARRATIVE: CASE EVENT DATE: 201802
